FAERS Safety Report 21657335 (Version 2)
Quarter: 2022Q4

REPORT INFORMATION
  Report Type: Spontaneous
  Country: US (occurrence: US)
  Receive Date: 20221129
  Receipt Date: 20221207
  Transmission Date: 20230113
  Serious: No
  Sender: FDA-Public Use
  Company Number: US-SA-SAC20221128000152

PATIENT
  Age: 60 Year
  Sex: Male
  Weight: 111 kg

DRUGS (9)
  1. DUPIXENT [Suspect]
     Active Substance: DUPILUMAB
     Indication: Dermatitis atopic
     Dosage: 300 MG, QOW
     Route: 058
     Dates: start: 201908
  2. SINGULAIR [Concomitant]
     Active Substance: MONTELUKAST SODIUM
  3. TADALAFIL [Concomitant]
     Active Substance: TADALAFIL
  4. BUPROPION [Concomitant]
     Active Substance: BUPROPION
  5. LIPITOR [Concomitant]
     Active Substance: ATORVASTATIN CALCIUM
  6. OLMESARTAN MEDOXOMIL [Concomitant]
     Active Substance: OLMESARTAN MEDOXOMIL
  7. ALLOPURINOL [Concomitant]
     Active Substance: ALLOPURINOL
  8. CLARITHROMYCIN [Concomitant]
     Active Substance: CLARITHROMYCIN
  9. CLOBETASOL [Concomitant]
     Active Substance: CLOBETASOL

REACTIONS (6)
  - Eye discharge [Not Recovered/Not Resolved]
  - Eye irritation [Not Recovered/Not Resolved]
  - Eye pruritus [Not Recovered/Not Resolved]
  - Blepharitis [Unknown]
  - Knee arthroplasty [Unknown]
  - Therapeutic product effect decreased [Unknown]

NARRATIVE: CASE EVENT DATE: 20190801
